FAERS Safety Report 14101178 (Version 2)
Quarter: 2017Q4

REPORT INFORMATION
  Report Type: Spontaneous
  Country: EC (occurrence: EC)
  Receive Date: 20171018
  Receipt Date: 20171116
  Transmission Date: 20180321
  Serious: Yes (Hospitalization, Other)
  Sender: FDA-Public Use
  Company Number: EC-AMGEN-ECUSP2017155626

PATIENT
  Age: 67 Year
  Sex: Female
  Weight: 55 kg

DRUGS (14)
  1. METOTREXATE [Suspect]
     Active Substance: METHOTREXATE SODIUM
     Dosage: 1000 MG/M2, ONE TIME DOSE
     Route: 042
     Dates: start: 20170911, end: 20170911
  2. NEULASTIM [Suspect]
     Active Substance: PEGFILGRASTIM
     Dosage: 6 MG, ONE TIME DOSE (6 MG IN 6 ML X INJ X 1 SYR)
     Route: 058
     Dates: start: 20170915, end: 20170915
  3. FILGRASTIM [Suspect]
     Active Substance: FILGRASTIM
     Indication: PRODUCT USED FOR UNKNOWN INDICATION
     Dosage: 300 MUG, QD (FOR ATLEAST 4 DAYS)
     Route: 065
  4. METOTREXATE [Suspect]
     Active Substance: METHOTREXATE SODIUM
     Indication: MANTLE CELL LYMPHOMA
     Dosage: 1000 MG/M2, ONE TIME DOSE
     Route: 065
     Dates: start: 20170811, end: 20170811
  5. CYTARABINE. [Suspect]
     Active Substance: CYTARABINE
     Indication: MANTLE CELL LYMPHOMA
     Dosage: 70 MG, ONE TIME DOSE
     Route: 037
     Dates: start: 20170817, end: 20170817
  6. FILGRASTIM [Suspect]
     Active Substance: FILGRASTIM
     Dosage: 600 MUG, QD
     Route: 065
     Dates: start: 20170825
  7. CYTARABINE. [Suspect]
     Active Substance: CYTARABINE
     Dosage: 300 MG/M2, ONE TIME DOSE
     Route: 065
     Dates: start: 20170812, end: 20170812
  8. VINCRISTINE [Suspect]
     Active Substance: VINCRISTINE
     Indication: MANTLE CELL LYMPHOMA
     Dosage: 2 MG, ONE TIME DOSE
     Route: 042
     Dates: start: 20170814, end: 20170814
  9. LEUCOVORINA [Concomitant]
     Active Substance: LEUCOVORIN CALCIUM
     Indication: MANTLE CELL LYMPHOMA
     Dosage: 25 MG/M2, Q6H
     Dates: start: 20170812, end: 20170814
  10. NEULASTIM [Suspect]
     Active Substance: PEGFILGRASTIM
     Indication: PROPHYLAXIS
     Dosage: 6 MG, ONE TIME DOSE (6 MG IN 6 ML X INJ X 1 SYR)
     Route: 058
     Dates: start: 20170815, end: 20170815
  11. FILGRASTIM [Suspect]
     Active Substance: FILGRASTIM
     Dosage: 300 MUG, UNK(2 VIALS EVERYDAY FOR 6 DAYS)
     Route: 058
  12. LEUCOVORINA [Concomitant]
     Active Substance: LEUCOVORIN CALCIUM
     Dosage: 25 MG/M2, QD (DAILY)
     Route: 042
     Dates: start: 20170912, end: 20170914
  13. CYCLOPHOSPHAMIDE. [Suspect]
     Active Substance: CYCLOPHOSPHAMIDE
     Indication: MANTLE CELL LYMPHOMA
     Dosage: 300 MG/M2, QD
     Route: 042
     Dates: start: 20170811, end: 20170813
  14. CYTARABINE. [Suspect]
     Active Substance: CYTARABINE
     Dosage: 300 MG/M2, UNK (ONLY 4 TIMES)
     Route: 042
     Dates: start: 20170912, end: 20170913

REACTIONS (4)
  - Drug ineffective [Recovered/Resolved]
  - Neutropenia [Recovered/Resolved]
  - Febrile neutropenia [Recovered/Resolved]
  - Urinary tract infection [Recovered/Resolved]

NARRATIVE: CASE EVENT DATE: 20170823
